FAERS Safety Report 4877911-6 (Version None)
Quarter: 2006Q1

REPORT INFORMATION
  Report Type: 
  Country: None (occurrence: None)
  Receive Date: 20060109
  Receipt Date: 20051219
  Transmission Date: 20060701
  Serious: Yes (Hospitalization, Other)
  Sender: FDA-Public Use
  Company Number: 2006000886

PATIENT
  Sex: Male
  Weight: 102.0593 kg

DRUGS (3)
  1. VIAGRA [Suspect]
     Indication: ERECTILE DYSFUNCTION
     Dosage: 100 MG
  2. NORVASC [Suspect]
     Indication: HYPERTENSION
     Dosage: 10 MG
  3. METOPROL XL (METOPROLOL SUCCINATE) [Suspect]
     Indication: HYPERTENSION
     Dosage: 100 MG

REACTIONS (10)
  - CONDITION AGGRAVATED [None]
  - DYSPEPSIA [None]
  - EJACULATION DISORDER [None]
  - HYPERTENSION [None]
  - LACRIMATION INCREASED [None]
  - LOSS OF CONSCIOUSNESS [None]
  - SINUS CONGESTION [None]
  - TREATMENT NONCOMPLIANCE [None]
  - VISION BLURRED [None]
  - WRONG TECHNIQUE IN DRUG USAGE PROCESS [None]
